FAERS Safety Report 7767758-5 (Version None)
Quarter: 2011Q3

REPORT INFORMATION
  Report Type: 
  Country: None (occurrence: None)
  Receive Date: 20110922
  Receipt Date: 20110610
  Transmission Date: 20111222
  Serious: No
  Sender: FDA-Public Use
  Company Number: US-ASTRAZENECA-2010SE21215

PATIENT
  Age: 49 Year
  Sex: Male
  Weight: 99.8 kg

DRUGS (14)
  1. TOPAMAX [Concomitant]
  2. SEROQUEL [Suspect]
     Route: 048
     Dates: start: 20100513
  3. TRAZODONE HCL [Concomitant]
  4. SEROQUEL [Suspect]
     Indication: AGITATION
     Route: 048
  5. SEROQUEL [Suspect]
     Route: 048
  6. INDERAL LA [Concomitant]
     Indication: PANIC ATTACK
  7. ZOLOFT [Concomitant]
     Indication: DEPRESSION
  8. SEROQUEL [Suspect]
     Route: 048
     Dates: start: 20100430, end: 20100513
  9. PROTONIX [Concomitant]
     Indication: GASTROOESOPHAGEAL REFLUX DISEASE
  10. REQUIP [Concomitant]
     Indication: RESTLESS LEGS SYNDROME
  11. XANAX [Concomitant]
     Indication: PANIC ATTACK
  12. LITHIUM CARBONATE [Concomitant]
     Indication: BIPOLAR I DISORDER
  13. PROZAC [Concomitant]
     Indication: DEPRESSION
  14. KLONOPIN [Concomitant]

REACTIONS (4)
  - DRUG WITHDRAWAL SYNDROME [None]
  - DRUG DOSE OMISSION [None]
  - MENTAL DISORDER [None]
  - OFF LABEL USE [None]
